FAERS Safety Report 6882541-0 (Version None)
Quarter: 2010Q3

REPORT INFORMATION
  Report Type: 
  Country: None (occurrence: None)
  Receive Date: 20100701
  Receipt Date: 20091218
  Transmission Date: 20110219
  Serious: Yes (Life-Threatening, Hospitalization)
  Sender: FDA-Public Use
  Company Number: GXBR2009US02187

PATIENT
  Sex: Male

DRUGS (1)
  1. SULFAMETHOXAZOLE TRIMETHOPRIM [Suspect]
     Indication: SKIN INFECTION
     Dosage: 800/160MG BID, ORAL
     Route: 048
     Dates: start: 20071130, end: 20071220

REACTIONS (6)
  - INFLUENZA LIKE ILLNESS [None]
  - KERATOCONJUNCTIVITIS SICCA [None]
  - NAIL DISORDER [None]
  - SKIN DISORDER [None]
  - STEVENS-JOHNSON SYNDROME [None]
  - TOXIC EPIDERMAL NECROLYSIS [None]
